FAERS Safety Report 8388773-7 (Version None)
Quarter: 2012Q2

REPORT INFORMATION
  Report Type: 
  Country: None (occurrence: None)
  Receive Date: 20120528
  Receipt Date: 20120515
  Transmission Date: 20120825
  Serious: Yes (Life-Threatening)
  Sender: FDA-Public Use
  Company Number: FR-BRISTOL-MYERS SQUIBB COMPANY-16629743

PATIENT
  Age: 1 Day
  Sex: Male
  Weight: 2 kg

DRUGS (5)
  1. ETOPOSIDE [Suspect]
  2. DAUNORUBICIN HCL [Suspect]
  3. THIOGUANINE [Suspect]
  4. CYTARABINE [Suspect]
  5. MITOXANTRONE [Suspect]
     Dosage: NO OF COURSE: 1

REACTIONS (5)
  - PREMATURE RUPTURE OF MEMBRANES [None]
  - CAESAREAN SECTION [None]
  - PREMATURE BABY [None]
  - RESPIRATORY DISTRESS [None]
  - MATERNAL EXPOSURE DURING PREGNANCY [None]
